FAERS Safety Report 6502101-0 (Version None)
Quarter: 2009Q4

REPORT INFORMATION
  Report Type: 
  Country: None (occurrence: None)
  Receive Date: 20091214
  Receipt Date: 20091210
  Transmission Date: 20100525
  Serious: Yes (Death, Life-Threatening, Disabling)
  Sender: FDA-Public Use
  Company Number: 2007SP022205

PATIENT
  Age: 71 Year
  Sex: Female
  Weight: 53 kg

DRUGS (8)
  1. TEMODAL [Suspect]
     Indication: GLIOBLASTOMA MULTIFORME
     Dosage: 150 MG/M2;QD;PO ; 150 MG/M2;QD;PO ; 150 MG/M2;QD;PO ; 150 MG/M2;QD;PO
     Route: 048
     Dates: start: 20070112, end: 20070116
  2. TEMODAL [Suspect]
     Indication: GLIOBLASTOMA MULTIFORME
     Dosage: 150 MG/M2;QD;PO ; 150 MG/M2;QD;PO ; 150 MG/M2;QD;PO ; 150 MG/M2;QD;PO
     Route: 048
     Dates: start: 20070207, end: 20070211
  3. TEMODAL [Suspect]
     Indication: GLIOBLASTOMA MULTIFORME
     Dosage: 150 MG/M2;QD;PO ; 150 MG/M2;QD;PO ; 150 MG/M2;QD;PO ; 150 MG/M2;QD;PO
     Route: 048
     Dates: start: 20070312, end: 20070316
  4. TEMODAL [Suspect]
     Indication: GLIOBLASTOMA MULTIFORME
     Dosage: 150 MG/M2;QD;PO ; 150 MG/M2;QD;PO ; 150 MG/M2;QD;PO ; 150 MG/M2;QD;PO
     Route: 048
     Dates: start: 20070409, end: 20070413
  5. CABASER [Concomitant]
  6. EXCEGRAN [Concomitant]
  7. SYMMETREL [Concomitant]
  8. OLMETEC [Concomitant]

REACTIONS (5)
  - GENERAL PHYSICAL HEALTH DETERIORATION [None]
  - GLIOBLASTOMA MULTIFORME [None]
  - HYPOKALAEMIA [None]
  - LYMPHOCYTE COUNT DECREASED [None]
  - NEOPLASM PROGRESSION [None]
